FAERS Safety Report 21518751 (Version 1)
Quarter: 2022Q4

REPORT INFORMATION
  Report Type: Report from Study
  Country: US (occurrence: US)
  Receive Date: 20221028
  Receipt Date: 20221028
  Transmission Date: 20230113
  Serious: No
  Sender: FDA-Public Use
  Company Number: US-ABBVIE-4178138

PATIENT
  Sex: Male

DRUGS (1)
  1. VENCLEXTA [Suspect]
     Active Substance: VENETOCLAX
     Indication: Chronic lymphocytic leukaemia
     Dosage: TAKE DAILY: 2 10MG TAB 7DAYS, 1 50MG 7DAYS, 1 100MG TAB X7DAYS, THEN 2 100MG TABS X7DAYS WITH FOOD
     Route: 048

REACTIONS (1)
  - Headache [Not Recovered/Not Resolved]
